FAERS Safety Report 4532638-5 (Version None)
Quarter: 2004Q4

REPORT INFORMATION
  Report Type: 
  Country: None (occurrence: None)
  Receive Date: 20041220
  Receipt Date: 20041220
  Transmission Date: 20050328
  Serious: No
  Sender: FDA-Public Use
  Company Number: None

PATIENT
  Age: 30 Year
  Sex: Male
  Weight: 59.8748 kg

DRUGS (1)
  1. PERCOCET [Suspect]
     Indication: ARTHRALGIA
     Dosage: 2 PO TID PRN
     Route: 048
     Dates: start: 19990101

REACTIONS (2)
  - CONSTIPATION [None]
  - NAUSEA [None]
